FAERS Safety Report 4903741-2 (Version None)
Quarter: 2006Q1

REPORT INFORMATION
  Report Type: 
  Country: None (occurrence: None)
  Receive Date: 20060208
  Receipt Date: 20060116
  Transmission Date: 20060701
  Serious: Yes (Hospitalization, Other)
  Sender: FDA-Public Use
  Company Number: AU-AMGEN-US165131

PATIENT
  Age: 35 Year
  Sex: Male
  Weight: 88 kg

DRUGS (6)
  1. ARANESP [Suspect]
     Indication: ANAEMIA OF MALIGNANT DISEASE
     Dates: start: 20051215, end: 20060112
  2. VALACYCLOVIR HCL [Concomitant]
  3. DEXAMETHASONE [Concomitant]
  4. OMEPRAZOLE [Concomitant]
  5. OXYCONTIN [Concomitant]
  6. ONDANSETRON [Concomitant]

REACTIONS (3)
  - APLASIA PURE RED CELL [None]
  - DIALYSIS [None]
  - MARROW HYPERPLASIA [None]
